FAERS Safety Report 5160863-1 (Version None)
Quarter: 2006Q4

REPORT INFORMATION
  Report Type: 
  Country: None (occurrence: None)
  Receive Date: 20061130
  Receipt Date: 20061117
  Transmission Date: 20070319
  Serious: Yes (Life-Threatening)
  Sender: FDA-Public Use
  Company Number: US-SOLVAY-00206003833

PATIENT
  Age: 24359 Day
  Sex: Male
  Weight: 113 kg

DRUGS (6)
  1. ATENOLOL [Concomitant]
     Indication: HYPERTENSION
     Dosage: DAILY DOSE: 25 MILLIGRAM(S)
     Route: 048
     Dates: start: 20060323
  2. ANDROGEL [Suspect]
     Indication: HYPOGONADISM
     Dosage: DAILY DOSE: 7.5 GRAM(S)
     Route: 062
     Dates: start: 20061020
  3. IBUPROFEN [Concomitant]
     Indication: ARTHRALGIA
     Dosage: DAILY DOSE: 2400 MILLIGRAM(S)
     Route: 048
     Dates: start: 20060210
  4. BLINDED THERAPY [PLACEBO VS DUTASTERIDE] [Suspect]
     Indication: BENIGN PROSTATIC HYPERPLASIA
     Dosage: DAILY DOSE: .5 MILLIGRAM(S)
     Route: 048
     Dates: start: 20061020
  5. CAPSAICIN [Concomitant]
     Indication: ARTHRALGIA
     Dosage: DAILY DOSE: .225 PERCENT
     Route: 058
     Dates: start: 20061109
  6. LISINOPRIL [Suspect]
     Indication: HYPERTENSION
     Dosage: DAILY DOSE: 40 MILLIGRAM(S)
     Route: 048
     Dates: start: 20060323, end: 20061108

REACTIONS (1)
  - ANAPHYLACTIC REACTION [None]
